FAERS Safety Report 9476842 (Version 1)
Quarter: 2013Q3

REPORT INFORMATION
  Report Type: Spontaneous
  Country: US (occurrence: US)
  Receive Date: 20130826
  Receipt Date: 20130826
  Transmission Date: 20140515
  Serious: No
  Sender: FDA-Public Use
  Company Number: US-TARO-2013P1004158

PATIENT
  Age: 48 Year
  Sex: Male
  Weight: 129.28 kg

DRUGS (2)
  1. CLOBETASOL PROPIONATE CREAM [Suspect]
     Indication: ECZEMA
     Route: 061
     Dates: start: 201301, end: 20130325
  2. RISPERIDONE 2 MG [Concomitant]
     Dates: start: 201211

REACTIONS (1)
  - Coeliac disease [Not Recovered/Not Resolved]
